FAERS Safety Report 5198997-8 (Version None)
Quarter: 2006Q4

REPORT INFORMATION
  Report Type: 
  Country: None (occurrence: None)
  Receive Date: 20060919
  Receipt Date: 20060727
  Transmission Date: 20070319
  Serious: No
  Sender: FDA-Public Use
  Company Number: 2006US001712

PATIENT
  Age: 59 Year
  Sex: Male

DRUGS (4)
  1. VESICARE [Suspect]
     Indication: URINARY INCONTINENCE
     Dosage: SEE IMAGE
     Route: 048
     Dates: end: 20060727
  2. VESICARE [Suspect]
     Indication: URINARY INCONTINENCE
     Dosage: SEE IMAGE
     Route: 048
     Dates: start: 20060501
  3. LEXAPRO [Concomitant]
  4. UROXATRAL [Concomitant]

REACTIONS (2)
  - ASTHENIA [None]
  - MUSCLE FATIGUE [None]
